FAERS Safety Report 6565150-2 (Version None)
Quarter: 2010Q1

REPORT INFORMATION
  Report Type: 
  Country: None (occurrence: None)
  Receive Date: 20100201
  Receipt Date: 20100125
  Transmission Date: 20100710
  Serious: Yes (Other)
  Sender: FDA-Public Use
  Company Number: B0624330A

PATIENT
  Sex: Female
  Weight: 54 kg

DRUGS (1)
  1. AUGMENTIN '125' [Suspect]
     Dosage: 1G THREE TIMES PER DAY
     Route: 042
     Dates: start: 20091211, end: 20091214

REACTIONS (4)
  - LOCAL REACTION [None]
  - LYMPHANGITIS [None]
  - PAIN [None]
  - PRODUCT QUALITY ISSUE [None]
